FAERS Safety Report 5310768-8 (Version None)
Quarter: 2007Q2

REPORT INFORMATION
  Report Type: 
  Country: None (occurrence: None)
  Receive Date: 20070428
  Receipt Date: 20070417
  Transmission Date: 20071010
  Serious: Yes (Life-Threatening)
  Sender: FDA-Public Use
  Company Number: RO-PFIZER INC-2007024835

PATIENT
  Sex: Male
  Weight: 50 kg

DRUGS (3)
  1. SU-011,248 [Suspect]
     Indication: RENAL CELL CARCINOMA STAGE UNSPECIFIED
     Route: 048
  2. METOPROLOL SUCCINATE [Concomitant]
     Route: 048
  3. OMEPRAZOLE [Concomitant]
     Route: 048
     Dates: start: 20061118

REACTIONS (1)
  - HYPERTENSION [None]
